FAERS Safety Report 5718994-0 (Version None)
Quarter: 2008Q2

REPORT INFORMATION
  Report Type: 
  Country: None (occurrence: None)
  Receive Date: 20080425
  Receipt Date: 20080418
  Transmission Date: 20081010
  Serious: Yes (Other)
  Sender: FDA-Public Use
  Company Number: PHHY2008BR06180

PATIENT
  Age: 56 Year
  Sex: Female
  Weight: 60 kg

DRUGS (3)
  1. ESTRADERM [Suspect]
     Indication: MENOPAUSE
     Dosage: TWO PATCHES A WEEK
     Route: 058
     Dates: start: 20080301, end: 20080415
  2. ESTRADERM [Suspect]
     Dosage: 50 MCG,TWO PATCHES A WEEK
     Route: 062
     Dates: start: 20000101, end: 20071201
  3. STUGERON [Concomitant]
     Indication: LABYRINTHITIS
     Dosage: 25 MG, QD
     Route: 048
     Dates: start: 20080416

REACTIONS (12)
  - BALANCE DISORDER [None]
  - BREAST MASS [None]
  - DIZZINESS [None]
  - FATIGUE [None]
  - FEELING ABNORMAL [None]
  - FEELING HOT [None]
  - HEADACHE [None]
  - INTRA-CEREBRAL ANEURYSM OPERATION [None]
  - MALAISE [None]
  - MOOD ALTERED [None]
  - MUSCULAR WEAKNESS [None]
  - PROSTHESIS USER [None]
